FAERS Safety Report 8722716 (Version 2)
Quarter: 2013Q4

REPORT INFORMATION
  Report Type: Spontaneous
  Country: FR (occurrence: FR)
  Receive Date: 20120828
  Receipt Date: 20131031
  Transmission Date: 20140711
  Serious: Yes (Life-Threatening, Other)
  Sender: FDA-Public Use
  Company Number: FR-009507513-1208FRA004830

PATIENT
  Age: 34 Year
  Sex: Male

DRUGS (16)
  1. ISENTRESS [Suspect]
     Indication: HIV INFECTION
     Dosage: UNK
     Route: 048
     Dates: start: 201205
  2. ACUPAN [Suspect]
     Dosage: 120 MG, QD
     Route: 042
     Dates: start: 20120716, end: 20120727
  3. AMIKACINE MYLAN [Suspect]
     Dosage: 900 MG, QD
     Route: 042
     Dates: start: 20120711
  4. ANSATIPINE [Suspect]
     Dosage: UNK
     Route: 042
     Dates: start: 20120711
  5. BACTRIM [Suspect]
     Dosage: 800 MG, QD
     Dates: start: 20120713
  6. CERNEVIT [Suspect]
     Dosage: UNK
     Route: 042
     Dates: start: 20120710, end: 20120802
  7. DIFFU-K [Suspect]
     Dosage: UNK
     Route: 048
     Dates: start: 20120710
  8. KALETRA [Suspect]
     Indication: HIV INFECTION
     Dosage: UNK
     Dates: start: 201203
  9. LEDERFOLINE [Suspect]
     Dosage: UNK
     Route: 048
     Dates: start: 20120710
  10. LYSANXIA [Suspect]
     Dosage: 1 DF, QD
     Route: 048
     Dates: start: 20120710
  11. MYAMBUTOL [Suspect]
     Dosage: 1 DF, BID
     Dates: start: 20120711
  12. OLANZAPINE [Suspect]
     Dosage: 5 MG, UNK
     Route: 048
     Dates: start: 2012
  13. PERFALGAN [Suspect]
     Dosage: 500 MG, QD
     Route: 042
     Dates: start: 20120711
  14. ZECLAR [Suspect]
     Dosage: 500 MG, QD
     Route: 048
     Dates: start: 20120711
  15. TRUVADA [Suspect]
     Indication: HIV INFECTION
     Dosage: UNK
     Dates: start: 201203
  16. PERIKABIVEN 1200 [Suspect]
     Dosage: UNK
     Route: 051
     Dates: start: 20120710

REACTIONS (2)
  - Convulsion [Recovered/Resolved]
  - Coma [Recovered/Resolved]
